FAERS Safety Report 14719737 (Version 2)
Quarter: 2018Q2

REPORT INFORMATION
  Report Type: Spontaneous
  Country: US (occurrence: US)
  Receive Date: 20180405
  Receipt Date: 20180410
  Transmission Date: 20180711
  Serious: No
  Sender: FDA-Public Use
  Company Number: US-TEVA-2018-US-877539

PATIENT
  Sex: Male

DRUGS (1)
  1. WARFARIN [Suspect]
     Active Substance: WARFARIN
     Indication: THROMBOSIS
     Dates: start: 2012

REACTIONS (4)
  - Dyspnoea [Unknown]
  - Back pain [Unknown]
  - Muscle spasms [Unknown]
  - Anxiety [Unknown]

NARRATIVE: CASE EVENT DATE: 201711
